FAERS Safety Report 8845120 (Version 1)
Quarter: 2012Q4

REPORT INFORMATION
  Report Type: 
  Country: AU (occurrence: AU)
  Receive Date: 20121017
  Receipt Date: 20121017
  Transmission Date: 20130627
  Serious: Yes (Other)
  Sender: FDA-Public Use
  Company Number: AU-PFIZER INC-2012253903

PATIENT
  Age: 21 Year
  Sex: Male

DRUGS (1)
  1. XANAX [Suspect]
     Dosage: UNK

REACTIONS (4)
  - Overdose [Unknown]
  - Abnormal behaviour [Unknown]
  - Aggression [Unknown]
  - Imprisonment [Unknown]
